FAERS Safety Report 6529949-0 (Version None)
Quarter: 2010Q1

REPORT INFORMATION
  Report Type: 
  Country: None (occurrence: None)
  Receive Date: 20100107
  Receipt Date: 20100105
  Transmission Date: 20100710
  Serious: Yes (Other)
  Sender: FDA-Public Use
  Company Number: US-BRISTOL-MYERS SQUIBB COMPANY-14756795

PATIENT
  Sex: Male

DRUGS (15)
  1. COUMADIN [Suspect]
     Indication: ATRIAL FIBRILLATION
     Dosage: 6MG SIX DAY PER WEEK,3MG ONE DAY PER WEEK,DECREASED 6MG FIVE DAY/WEEK AND 3 MG TWO DAY/WEEK
     Dates: start: 20040913
  2. ALCOHOL [Concomitant]
  3. ALLOPURINOL [Concomitant]
     Indication: GOUT
     Route: 048
  4. CARVEDILOL [Concomitant]
     Indication: CARDIAC DISORDER
     Dosage: TABS
     Route: 048
  5. CODEINE PHOSPHATE AND ACETAMINOPHEN [Concomitant]
     Indication: PAIN
     Dosage: 1 DF = 15/300MG TABS
     Route: 048
  6. COLCHICINE [Concomitant]
     Indication: GOUT
     Dosage: FORMULATION: TABS
     Route: 048
  7. FOLIC ACID [Concomitant]
     Dosage: TABS
     Route: 048
  8. LEVOTHYROXINE SODIUM [Concomitant]
     Indication: THYROID DISORDER
     Dosage: FORMULATION: TABS
     Route: 048
  9. LISINOPRIL [Concomitant]
     Indication: BLOOD PRESSURE
     Route: 048
  10. MENTHOL + METHYL SALICYLATE [Concomitant]
     Indication: BACK PAIN
     Dosage: 1 DF = 10-15% UNITS NOT SPECIFIED
  11. SIMVASTATIN [Concomitant]
     Indication: BLOOD CHOLESTEROL
     Dosage: FORMULATION: TABS
     Route: 048
  12. ASCORBIC ACID [Concomitant]
     Dosage: 1 DF = 1 TAB
     Route: 048
  13. CYANOCOBALAMIN [Concomitant]
     Dosage: 1 DF = 1 TAB
     Route: 048
  14. FISH OIL [Concomitant]
     Dosage: FORMULATION CAP
     Route: 048
  15. PYRIDOXINE [Concomitant]
     Dosage: 1 DF = 1 TAB
     Route: 048

REACTIONS (3)
  - JOINT INJURY [None]
  - LOWER LIMB FRACTURE [None]
  - PULMONARY EMBOLISM [None]
